FAERS Safety Report 20195727 (Version 2)
Quarter: 2022Q1

REPORT INFORMATION
  Report Type: Spontaneous
  Country: US (occurrence: US)
  Receive Date: 20211216
  Receipt Date: 20220217
  Transmission Date: 20220423
  Serious: No
  Sender: FDA-Public Use
  Company Number: US-MYLANLABS-2021M1093193

PATIENT
  Age: 11 Year
  Sex: Female
  Weight: 32.66 kg

DRUGS (1)
  1. EPINEPHRINE [Suspect]
     Active Substance: EPINEPHRINE
     Indication: Hypersensitivity
     Dosage: 0.3 MILLIGRAM
     Route: 030
     Dates: start: 20211203

REACTIONS (1)
  - Product quality issue [None]

NARRATIVE: CASE EVENT DATE: 20211207
